FAERS Safety Report 24576724 (Version 1)
Quarter: 2024Q4

REPORT INFORMATION
  Report Type: Spontaneous
  Country: US (occurrence: None)
  Receive Date: 20241104
  Receipt Date: 20241104
  Transmission Date: 20250114
  Serious: No
  Sender: Public
  Company Number: None

PATIENT
  Age: 72 Year
  Sex: Female
  Weight: 79.65 kg

DRUGS (4)
  1. LEVOCARNITINE\SEMAGLUTIDE [Suspect]
     Active Substance: LEVOCARNITINE\SEMAGLUTIDE
     Indication: Obesity
     Dosage: OTHER QUANTITY : 1 INJECTION(S);?OTHER FREQUENCY : 1 TIME A WEEK;?
     Route: 058
     Dates: start: 20241031
  2. XARELTO [Concomitant]
     Active Substance: RIVAROXABAN
  3. GABAPENTIN [Concomitant]
     Active Substance: GABAPENTIN
  4. DULOXETINE [Concomitant]
     Active Substance: DULOXETINE

REACTIONS (1)
  - Incorrect dose administered [None]

NARRATIVE: CASE EVENT DATE: 20241031
